FAERS Safety Report 6913775-4 (Version None)
Quarter: 2010Q3

REPORT INFORMATION
  Report Type: 
  Country: None (occurrence: None)
  Receive Date: 20100806
  Receipt Date: 20100806
  Transmission Date: 20110219
  Serious: Yes (Life-Threatening, Hospitalization)
  Sender: FDA-Public Use
  Company Number: None

PATIENT
  Age: 80 Year
  Sex: Female
  Weight: 82.5547 kg

DRUGS (1)
  1. RECLAST [Suspect]
     Indication: OSTEOPOROSIS
     Dosage: INFUSION 1X YEARLY
     Dates: start: 20081125, end: 20100428

REACTIONS (12)
  - ASTHENIA [None]
  - BACK PAIN [None]
  - DIALYSIS [None]
  - INFLUENZA LIKE ILLNESS [None]
  - MYALGIA [None]
  - POLLAKIURIA [None]
  - RENAL FAILURE ACUTE [None]
  - REPETITIVE SPEECH [None]
  - TREMOR [None]
  - UNEVALUABLE EVENT [None]
  - VISUAL IMPAIRMENT [None]
  - VOMITING [None]
